FAERS Safety Report 23545093 (Version 3)
Quarter: 2024Q2

REPORT INFORMATION
  Report Type: Spontaneous
  Country: US (occurrence: US)
  Receive Date: 20240220
  Receipt Date: 20240516
  Transmission Date: 20240715
  Serious: No
  Sender: FDA-Public Use
  Company Number: US-PFIZER INC-202400045534

PATIENT
  Age: 48 Year
  Sex: Female

DRUGS (3)
  1. BOSULIF [Suspect]
     Active Substance: BOSUTINIB MONOHYDRATE
     Dosage: 100MG ORAL.
     Route: 048
     Dates: start: 20240214
  2. BOSULIF [Suspect]
     Active Substance: BOSUTINIB MONOHYDRATE
     Dosage: 100MG ORAL. TAKE 3 TABLETS (300 MG) DAILY
     Route: 048
     Dates: start: 20240327
  3. SPRYCEL [Concomitant]
     Active Substance: DASATINIB
     Dosage: 70 MG, DAILY
     Route: 048

REACTIONS (7)
  - Diarrhoea [Recovered/Resolved]
  - Full blood count decreased [Not Recovered/Not Resolved]
  - Abdominal discomfort [Not Recovered/Not Resolved]
  - Pain [Recovered/Resolved]
  - Flatulence [Recovered/Resolved]
  - Abdominal pain upper [Recovered/Resolved]
  - Product dose omission issue [Unknown]

NARRATIVE: CASE EVENT DATE: 20240201
